FAERS Safety Report 24570783 (Version 2)
Quarter: 2024Q4

REPORT INFORMATION
  Report Type: Report from Study
  Country: MX (occurrence: MX)
  Receive Date: 20241101
  Receipt Date: 20241210
  Transmission Date: 20250114
  Serious: Yes (Death, Hospitalization)
  Sender: ABBVIE
  Company Number: MX-ABBVIE-5984204

PATIENT
  Age: 77 Year
  Sex: Male
  Weight: 58 kg

DRUGS (1)
  1. VENCLEXTA [Suspect]
     Active Substance: VENETOCLAX
     Indication: Chronic lymphocytic leukaemia
     Dosage: FORM STRENGTH: 100 MILLIGRAM, - FREQUENCY TEXT: 2 DURING BREAKFAST AND 2 DURING LUNCH
     Route: 048
     Dates: start: 20231122, end: 20241118

REACTIONS (13)
  - Depression [Fatal]
  - Dysphagia [Unknown]
  - Constipation [Unknown]
  - Dermatitis [Recovering/Resolving]
  - Traumatic lung injury [Recovering/Resolving]
  - Pneumonia [Recovered/Resolved]
  - Speech disorder [Unknown]
  - Pyrexia [Recovered/Resolved]
  - Weight decreased [Recovered/Resolved]
  - Vomiting [Unknown]
  - Adverse event [Fatal]
  - Asthenia [Recovered/Resolved]
  - Choking [Unknown]

NARRATIVE: CASE EVENT DATE: 20240101
